FAERS Safety Report 14046784 (Version 1)
Quarter: 2017Q4

REPORT INFORMATION
  Report Type: Report from Study
  Country: US (occurrence: US)
  Receive Date: 20171005
  Receipt Date: 20171005
  Transmission Date: 20180321
  Serious: Yes (Other)
  Sender: FDA-Public Use
  Company Number: US-MYLANLABS-2017M1061851

PATIENT
  Age: 19 Year
  Sex: Male

DRUGS (3)
  1. CHLORPHENAMINE [Suspect]
     Active Substance: CHLORPHENIRAMINE MALEATE
     Indication: PRODUCT USED FOR UNKNOWN INDICATION
     Route: 048
  2. LOPERAMIDE [Suspect]
     Active Substance: LOPERAMIDE
     Indication: PRODUCT USED FOR UNKNOWN INDICATION
     Dosage: 288MG
     Route: 048
  3. PARACETAMOL [Suspect]
     Active Substance: ACETAMINOPHEN
     Indication: PRODUCT USED FOR UNKNOWN INDICATION
     Route: 048

REACTIONS (9)
  - Intentional overdose [Unknown]
  - Coma [Unknown]
  - Drug abuse [Unknown]
  - Respiratory depression [Unknown]
  - Somnolence [Unknown]
  - Miosis [Unknown]
  - Lethargy [Unknown]
  - Hypertension [Unknown]
  - Tachycardia [Unknown]
